FAERS Safety Report 7303198 (Version 15)
Quarter: 2014Q1

REPORT INFORMATION
  Report Type: Spontaneous
  Country: US (occurrence: US)
  Receive Date: 20100303
  Receipt Date: 20140121
  Transmission Date: 20141002
  Serious: Yes (Other)
  Sender: FDA-Public Use
  Company Number: PHEH2010US02602

PATIENT
  Sex: Female
  Weight: 49.89 kg

DRUGS (16)
  1. ZOMETA [Suspect]
     Indication: OSTEOPOROSIS
     Dosage: 4 MG, Q3MO
     Route: 042
     Dates: start: 200509, end: 200803
  2. ZOMETA [Suspect]
     Dosage: 4 MG, Q3MO
     Route: 042
     Dates: start: 200603
  3. FEMARA [Concomitant]
  4. AMOXICILLIN [Concomitant]
  5. METRONIDAZOLE [Concomitant]
  6. LOPRESSOR [Concomitant]
  7. NITROGLYCERIN ^A.L.^ [Concomitant]
  8. PLAVIX [Concomitant]
  9. ASPIRIN ^BAYER^ [Concomitant]
  10. ENOXAPARIN [Concomitant]
  11. METOPROLOL TARTRATE [Concomitant]
  12. TEMAZEPAM [Concomitant]
  13. ADVAIR [Concomitant]
     Dosage: 2 A DAY.
  14. ANTI-ESTROGENS [Concomitant]
  15. TAMOXIFEN [Concomitant]
  16. OXYGEN [Concomitant]

REACTIONS (48)
  - Osteopenia [Unknown]
  - Arrhythmia [Unknown]
  - Hepatic cyst [Unknown]
  - Angina unstable [Unknown]
  - Ulcer haemorrhage [Unknown]
  - Diverticulum intestinal [Unknown]
  - Duodenal ulcer haemorrhage [Unknown]
  - Duodenal ulcer [Unknown]
  - Osteonecrosis of jaw [Unknown]
  - Injury [Unknown]
  - Disability [Unknown]
  - Anxiety [Unknown]
  - Periodontitis [Unknown]
  - Impaired healing [Unknown]
  - Pain [Unknown]
  - Anhedonia [Unknown]
  - Loose tooth [Unknown]
  - General physical health deterioration [Unknown]
  - Exposed bone in jaw [Unknown]
  - Primary sequestrum [Unknown]
  - Infection [Unknown]
  - Bone loss [Unknown]
  - Palatal oedema [Recovered/Resolved]
  - Tenderness [Unknown]
  - Hypertension [Unknown]
  - Cataract nuclear [Unknown]
  - Muscle spasms [Unknown]
  - Dyspnoea [Unknown]
  - Depression [Unknown]
  - Influenza [Unknown]
  - Astigmatism [Unknown]
  - Presbyopia [Unknown]
  - Myopia [Unknown]
  - Dizziness [Unknown]
  - Haematochezia [Unknown]
  - Rectal haemorrhage [Unknown]
  - Presyncope [Unknown]
  - Anaemia [Unknown]
  - Glaucoma [Unknown]
  - Visual acuity reduced [Unknown]
  - Anisometropia [Unknown]
  - Dry eye [Unknown]
  - Uveitis [Unknown]
  - Hypermetropia [Unknown]
  - Iridocyclitis [Unknown]
  - Blepharitis [Unknown]
  - Tooth loss [Unknown]
  - Fatigue [Unknown]
